FAERS Safety Report 24608859 (Version 2)
Quarter: 2025Q4

REPORT INFORMATION
  Report Type: Spontaneous
  Country: US (occurrence: US)
  Receive Date: 20241112
  Receipt Date: 20251009
  Transmission Date: 20260117
  Serious: Yes (Hospitalization, Other)
  Sender: SANDOZ
  Company Number: US-002147023-NVSC2019US001947

PATIENT
  Age: 51 Year
  Sex: Female

DRUGS (12)
  1. THYMOCYTE IMMUNE GLOBULIN NOS [Suspect]
     Active Substance: THYMOCYTE IMMUNE GLOBULIN NOS
     Indication: Immunosuppressant drug therapy
     Dosage: 3 DOSES OF 100 MG (1.5 MG/KG), TOTAL
     Route: 042
     Dates: start: 201512
  2. SULFAMETHOXAZOLE AND TRIMETHOPRIM [Suspect]
     Active Substance: SULFAMETHOXAZOLE\TRIMETHOPRIM
     Indication: Antifungal prophylaxis
     Dosage: 1 DF, QD
     Route: 065
     Dates: start: 201512, end: 2016
  3. TACROLIMUS [Suspect]
     Active Substance: TACROLIMUS
     Indication: Immunosuppressant drug therapy
     Dosage: TARGET TROUGH LEVEL OF 10?12 MG/DL
     Route: 065
     Dates: start: 201512, end: 2016
  4. TACROLIMUS [Suspect]
     Active Substance: TACROLIMUS
     Dosage: 13 MG, BID
     Route: 065
     Dates: start: 2016, end: 2016
  5. TACROLIMUS [Suspect]
     Active Substance: TACROLIMUS
     Dosage: 17 MG, BID
     Route: 065
     Dates: start: 2016, end: 2016
  6. TACROLIMUS [Suspect]
     Active Substance: TACROLIMUS
     Dosage: TAC TROUGH LEVEL WAS REDUCED TO 6?7 NG/DL
     Route: 065
     Dates: start: 2016, end: 2016
  7. TACROLIMUS [Suspect]
     Active Substance: TACROLIMUS
     Dosage: TARGET THE GOAL TROUGH OF 8?10 MG/DL
     Route: 065
     Dates: end: 2016
  8. VALGANCICLOVIR [Suspect]
     Active Substance: VALGANCICLOVIR
     Indication: Antiviral prophylaxis
     Dosage: 450 MG, Q48H
     Route: 065
     Dates: start: 201512, end: 2016
  9. PREDNISONE [Concomitant]
     Active Substance: PREDNISONE
     Indication: Immunosuppressant drug therapy
     Dosage: 5 MG, QD
     Route: 065
     Dates: start: 2016, end: 2016
  10. PREDNISONE [Concomitant]
     Active Substance: PREDNISONE
     Dosage: CONTINUED TO BE TAPERED
     Route: 065
     Dates: start: 201512, end: 2016
  11. MYCOPHENOLATE MOFETIL [Interacting]
     Active Substance: MYCOPHENOLATE MOFETIL
     Dosage: 1.000G BID
     Route: 048
     Dates: start: 201512, end: 2016
  12. MYCOPHENOLATE MOFETIL [Interacting]
     Active Substance: MYCOPHENOLATE MOFETIL
     Indication: Immunosuppressant drug therapy
     Dosage: 500.000MG BID
     Route: 048
     Dates: start: 2016, end: 2016

REACTIONS (8)
  - Tremor [Unknown]
  - Myelosuppression [Recovered/Resolved]
  - Myelosuppression [Recovered/Resolved]
  - Hyperkalaemia [Unknown]
  - Neutropenia [Recovered/Resolved]
  - Drug interaction [Recovered/Resolved]
  - Drug ineffective [Unknown]
  - Product use in unapproved indication [Unknown]

NARRATIVE: CASE EVENT DATE: 20160101
